FAERS Safety Report 21584228 (Version 1)
Quarter: 2022Q4

REPORT INFORMATION
  Report Type: Spontaneous
  Country: US (occurrence: US)
  Receive Date: 20221111
  Receipt Date: 20221111
  Transmission Date: 20230113
  Serious: Yes (Other)
  Sender: FDA-Public Use
  Company Number: US-BAYER-2022A157256

PATIENT
  Age: 66 Year
  Sex: Male

DRUGS (2)
  1. KOGENATE FS [Suspect]
     Active Substance: ANTIHEMOPHILIC FACTOR, HUMAN RECOMBINANT
     Dosage: 1650 IU, PRN
     Route: 042
  2. KOGENATE FS [Suspect]
     Active Substance: ANTIHEMOPHILIC FACTOR, HUMAN RECOMBINANT
     Dosage: 8 DF, FOR THE LEFT SHOULDER DISLOCATION, BRUISES AND SHOULDER HURT TREATMENT

REACTIONS (3)
  - Joint dislocation [None]
  - Contusion [None]
  - Arthralgia [None]

NARRATIVE: CASE EVENT DATE: 20221107
